FAERS Safety Report 16419607 (Version 1)
Quarter: 2019Q2

REPORT INFORMATION
  Report Type: Spontaneous
  Country: US (occurrence: US)
  Receive Date: 20190612
  Receipt Date: 20190612
  Transmission Date: 20190711
  Serious: No
  Sender: FDA-Public Use
  Company Number: US-TEVA-2019-US-1053219

PATIENT
  Age: 67 Year
  Sex: Female

DRUGS (3)
  1. ASPRIN 81 MG [Concomitant]
  2. VITAMIN D [Concomitant]
     Active Substance: VITAMIN D NOS
  3. PRAVASTATIN. [Suspect]
     Active Substance: PRAVASTATIN
     Indication: CEREBROVASCULAR ACCIDENT
     Dates: start: 20190429

REACTIONS (2)
  - Tension headache [Unknown]
  - Headache [Unknown]

NARRATIVE: CASE EVENT DATE: 201905
